FAERS Safety Report 19937189 (Version 2)
Quarter: 2022Q3

REPORT INFORMATION
  Report Type: Spontaneous
  Country: US (occurrence: US)
  Receive Date: 20211010
  Receipt Date: 20220818
  Transmission Date: 20221027
  Serious: No
  Sender: FDA-Public Use
  Company Number: US-ALEMBIC PHARMACUETICALS LIMITED-2021SCAL000407

PATIENT

DRUGS (2)
  1. DESVENLAFAXINE [Suspect]
     Active Substance: DESVENLAFAXINE
     Indication: Anxiety
     Dosage: 50 MG, QD
     Route: 048
     Dates: start: 20210801, end: 20210922
  2. DESVENLAFAXINE [Suspect]
     Active Substance: DESVENLAFAXINE
     Indication: Depression

REACTIONS (1)
  - Tremor [Unknown]
